FAERS Safety Report 8598263-4 (Version None)
Quarter: 2012Q3

REPORT INFORMATION
  Report Type: 
  Country: None (occurrence: None)
  Receive Date: 20120806
  Receipt Date: 20120806
  Transmission Date: 20120928
  Serious: Yes (Life-Threatening, Other)
  Sender: FDA-Public Use
  Company Number: None

PATIENT
  Age: 46 Year
  Sex: Female
  Weight: 83.9154 kg

DRUGS (1)
  1. CYANOCOBALAMIN [Suspect]
     Dosage: 1 ML WEEKLY IM
     Route: 030
     Dates: start: 20120725, end: 20120803

REACTIONS (2)
  - LATEX ALLERGY [None]
  - DRUG HYPERSENSITIVITY [None]
